FAERS Safety Report 9099334 (Version 3)
Quarter: 2013Q1

REPORT INFORMATION
  Report Type: Other
  Country: GB (occurrence: GB)
  Receive Date: 20130214
  Receipt Date: 20130311
  Transmission Date: 20140127
  Serious: Yes (Hospitalization)
  Sender: FDA-Public Use
  Company Number: GB-WATSON-2013-02289

PATIENT
  Age: 67 Year
  Sex: Female

DRUGS (6)
  1. METFORMIN HYDROCHLORIDE (UNKNOWN) [Suspect]
     Indication: PRODUCT USED FOR UNKNOWN INDICATION
     Dosage: 500 MG, BID
     Route: 065
  2. LEVEMIR [Suspect]
     Indication: TYPE 1 DIABETES MELLITUS
     Dosage: 5 UNITS IN THE MORNING AND 22 SINCE HOSPITAL DISCHARGE
     Route: 065
     Dates: start: 200510
  3. NOVORAPID [Suspect]
     Indication: TYPE 1 DIABETES MELLITUS
     Dosage: DOSE DEPENDING ON DIET
     Route: 065
     Dates: start: 200503
  4. SIMVASTATIN [Concomitant]
     Indication: PRODUCT USED FOR UNKNOWN INDICATION
     Dosage: UNKNOWN
     Route: 065
  5. INDAPAMIDE [Concomitant]
     Indication: PRODUCT USED FOR UNKNOWN INDICATION
     Dosage: UNKNOWN
     Route: 065
  6. LETROZOLE [Concomitant]
     Indication: BREAST CANCER
     Dosage: UNKNOWN
     Route: 065

REACTIONS (4)
  - Ketoacidosis [Recovered/Resolved]
  - Loss of consciousness [Recovered/Resolved]
  - Hypoglycaemia [Recovered/Resolved]
  - Device difficult to use [Unknown]
